FAERS Safety Report 7658754-7 (Version None)
Quarter: 2011Q3

REPORT INFORMATION
  Report Type: 
  Country: None (occurrence: None)
  Receive Date: 20110805
  Receipt Date: 20110801
  Transmission Date: 20111222
  Serious: Yes (Other)
  Sender: FDA-Public Use
  Company Number: AU-PFIZER INC-2011174937

PATIENT
  Sex: Female

DRUGS (1)
  1. PRISTIQ [Suspect]
     Dosage: 50 MG, 1X/DAY

REACTIONS (17)
  - DEPRESSED MOOD [None]
  - AGGRESSION [None]
  - ANXIETY [None]
  - ABNORMAL DREAMS [None]
  - BLOOD PRESSURE INCREASED [None]
  - RESTLESSNESS [None]
  - ASTHENIA [None]
  - INSOMNIA [None]
  - HEADACHE [None]
  - IRRITABILITY [None]
  - VISUAL IMPAIRMENT [None]
  - URINARY RETENTION [None]
  - GASTROINTESTINAL DISORDER [None]
  - BRADYPHRENIA [None]
  - PRURITUS [None]
  - MALAISE [None]
  - NAUSEA [None]
